FAERS Safety Report 5110023-5 (Version None)
Quarter: 2006Q3

REPORT INFORMATION
  Report Type: 
  Country: None (occurrence: None)
  Receive Date: 20060921
  Receipt Date: 20060911
  Transmission Date: 20061208
  Serious: Yes (Hospitalization)
  Sender: FDA-Public Use
  Company Number: PHBS2006BR13799

PATIENT
  Age: 25 Year
  Sex: Male
  Weight: 92 kg

DRUGS (6)
  1. LEPONEX [Suspect]
     Indication: SCHIZOPHRENIA
     Dosage: 100 MG, BID
     Route: 048
     Dates: start: 20050601, end: 20060101
  2. LEPONEX [Suspect]
     Dosage: 50 MG MORNING/100 MG EVENING
     Route: 048
  3. QUENETON [Concomitant]
     Indication: SCHIZOPHRENIA
     Dosage: UNK, TID
     Route: 048
     Dates: start: 20050801
  4. VALTRIAN [Concomitant]
     Indication: HYPERTENSION
     Dosage: 50 MG/D
     Route: 048
  5. RISPERDAL [Suspect]
  6. OLANZAPINE [Suspect]

REACTIONS (13)
  - FATIGUE [None]
  - GAIT DISTURBANCE [None]
  - HYPOTENSION [None]
  - INFLAMMATION [None]
  - MYALGIA [None]
  - PLEURAL EFFUSION [None]
  - PNEUMONIA [None]
  - PYREXIA [None]
  - SINUSITIS [None]
  - SOMNOLENCE [None]
  - TACHYCARDIA [None]
  - TREMOR [None]
  - WEIGHT DECREASED [None]
